FAERS Safety Report 5602323-7 (Version None)
Quarter: 2008Q1

REPORT INFORMATION
  Report Type: 
  Country: None (occurrence: None)
  Receive Date: 20080125
  Receipt Date: 20080122
  Transmission Date: 20080703
  Serious: Yes (Death)
  Sender: FDA-Public Use
  Company Number: IT-GENENTECH-250890

PATIENT
  Sex: Male

DRUGS (5)
  1. RAPTIVA [Suspect]
     Indication: PSORIASIS
     Dosage: 1 MG/KG, 1/WEEK
     Route: 058
  2. RAPTIVA [Suspect]
     Dosage: 1 MG/KG, 1/WEEK
     Route: 058
     Dates: start: 20061030, end: 20070801
  3. RAPTIVA [Suspect]
     Dosage: 1 MG/KG, 1/WEEK
     Route: 058
     Dates: end: 20071010
  4. ATENOLOL [Suspect]
     Indication: HYPERTENSION
     Dosage: 100 MG, QD
     Route: 048
     Dates: start: 19960101, end: 20071010
  5. TAMSULOSIN HCL [Concomitant]
     Indication: BENIGN PROSTATIC HYPERPLASIA
     Dosage: 0.4 MG, QD
     Route: 048
     Dates: start: 20040101, end: 20071009

REACTIONS (3)
  - ANGINA UNSTABLE [None]
  - LOSS OF CONSCIOUSNESS [None]
  - MYOCARDIAL INFARCTION [None]
